FAERS Safety Report 22041539 (Version 1)
Quarter: 2023Q1

REPORT INFORMATION
  Report Type: Spontaneous
  Country: US (occurrence: None)
  Receive Date: 20230226
  Receipt Date: 20230226
  Transmission Date: 20230417
  Serious: Yes (Hospitalization)
  Sender: FDA-Public Use
  Company Number: None

PATIENT
  Sex: Male
  Weight: 77.11 kg

DRUGS (7)
  1. ABIRATERONE ACETATE [Suspect]
     Active Substance: ABIRATERONE ACETATE
     Indication: Prostate cancer
     Dosage: FREQUENCY : DAILY;?
     Route: 048
     Dates: start: 20230201
  2. CALCIUM\VITAMIN D [Concomitant]
     Active Substance: CALCIUM\VITAMIN D
  3. FINASTERIDE [Concomitant]
     Active Substance: FINASTERIDE
  4. LATANOPROST [Concomitant]
     Active Substance: LATANOPROST
  5. LUPRON DEPOT [Concomitant]
     Active Substance: LEUPROLIDE ACETATE
  6. PREDNISONE [Concomitant]
     Active Substance: PREDNISONE
  7. TIMOLOL [Concomitant]
     Active Substance: TIMOLOL

REACTIONS (1)
  - Staphylococcal infection [None]
